FAERS Safety Report 4552408-1 (Version None)
Quarter: 2005Q1

REPORT INFORMATION
  Report Type: 
  Country: None (occurrence: None)
  Receive Date: 20050114
  Receipt Date: 20040511
  Transmission Date: 20050727
  Serious: No
  Sender: FDA-Public Use
  Company Number: US-GLAXOSMITHKLINE-A0510417A

PATIENT
  Sex: Female

DRUGS (2)
  1. IMITREX [Suspect]
     Indication: MIGRAINE
     Dosage: 6MG VARIABLE DOSE
     Route: 042
     Dates: start: 20010501
  2. NO CONCURRENT MEDICATION [Concomitant]

REACTIONS (1)
  - ABDOMINAL PAIN [None]
